FAERS Safety Report 15983933 (Version 2)
Quarter: 2019Q1

REPORT INFORMATION
  Report Type: Spontaneous
  Country: BE (occurrence: BE)
  Receive Date: 20190220
  Receipt Date: 20190227
  Transmission Date: 20190418
  Serious: Yes (Hospitalization, Other)
  Sender: FDA-Public Use
  Company Number: BE-AUROBINDO-AUR-APL-2019-008130

PATIENT

DRUGS (2)
  1. PANTOPRAZOLE [Suspect]
     Active Substance: PANTOPRAZOLE
     Indication: POLYMYALGIA RHEUMATICA
     Dosage: 40 MILLIGRAM, DAILY
     Route: 065
  2. METHYLPREDNISOLONE. [Concomitant]
     Active Substance: METHYLPREDNISOLONE
     Indication: POLYMYALGIA RHEUMATICA
     Dosage: 32 MILLIGRAM
     Route: 065

REACTIONS (2)
  - Product use in unapproved indication [Unknown]
  - Inappropriate antidiuretic hormone secretion [Recovered/Resolved]
